FAERS Safety Report 10081520 (Version 1)
Quarter: 2014Q2

REPORT INFORMATION
  Report Type: Spontaneous
  Country: US (occurrence: US)
  Receive Date: 20140416
  Receipt Date: 20140416
  Transmission Date: 20141212
  Serious: No
  Sender: FDA-Public Use
  Company Number: US-009507513-1404USA009308

PATIENT
  Sex: Male

DRUGS (1)
  1. DR. SCHOLL^S FUNGAL NAIL REVITALIZER SYSTEM [Suspect]
     Indication: PRODUCT USED FOR UNKNOWN INDICATION
     Dosage: UNK, UNKNOWN
     Route: 061

REACTIONS (4)
  - Nail infection [Unknown]
  - Condition aggravated [Unknown]
  - Unevaluable event [Unknown]
  - Drug ineffective [Unknown]
